FAERS Safety Report 15940372 (Version 3)
Quarter: 2020Q1

REPORT INFORMATION
  Report Type: Spontaneous
  Country: JP (occurrence: JP)
  Receive Date: 20190208
  Receipt Date: 20200214
  Transmission Date: 20200409
  Serious: Yes (Hospitalization, Other)
  Sender: FDA-Public Use
  Company Number: JP-BRISTOL-MYERS SQUIBB COMPANY-BMS-2018-095617

PATIENT
  Age: 60 Year
  Sex: Male
  Weight: 65.6 kg

DRUGS (7)
  1. OPDIVO [Suspect]
     Active Substance: NIVOLUMAB
     Indication: MALIGNANT MELANOMA
     Dosage: 64 MILLIGRAM, Q3WK
     Route: 065
     Dates: start: 20180821
  2. CORTRIL [Suspect]
     Active Substance: HYDROCORTISONE
     Indication: PRODUCT USED FOR UNKNOWN INDICATION
     Dosage: 30 MILLIGRAM
     Route: 065
     Dates: start: 20190101
  3. CORTRIL [Suspect]
     Active Substance: HYDROCORTISONE
     Indication: PRODUCT USED FOR UNKNOWN INDICATION
     Dosage: 20 MILLIGRAM
     Route: 065
     Dates: start: 20181207
  4. CORTRIL [Suspect]
     Active Substance: HYDROCORTISONE
     Indication: PRODUCT USED FOR UNKNOWN INDICATION
     Dosage: 40 MILLIGRAM
     Route: 065
     Dates: start: 20181126
  5. CORTRIL [Suspect]
     Active Substance: HYDROCORTISONE
     Indication: PRODUCT USED FOR UNKNOWN INDICATION
     Dosage: 20 MILLIGRAM
     Route: 065
     Dates: start: 20181020
  6. CORTRIL [Suspect]
     Active Substance: HYDROCORTISONE
     Indication: PRODUCT USED FOR UNKNOWN INDICATION
     Dosage: 20 MILLIGRAM
     Route: 065
     Dates: start: 20190106
  7. YERVOY [Suspect]
     Active Substance: IPILIMUMAB
     Indication: MALIGNANT MELANOMA
     Dosage: 192 MILLIGRAM, Q3WK
     Route: 005
     Dates: start: 20180821, end: 20181024

REACTIONS (19)
  - Hypothyroidism [Unknown]
  - Adrenocortical insufficiency acute [Unknown]
  - Taste disorder [Recovered/Resolved]
  - Movement disorder [Unknown]
  - Cerebral ischaemia [Unknown]
  - Personality change [Not Recovered/Not Resolved]
  - Muscular weakness [Unknown]
  - Hypophysitis [Recovering/Resolving]
  - Eyelid tumour [Unknown]
  - Astigmatism [Unknown]
  - Mental disorder [Unknown]
  - Blood corticotrophin decreased [Recovering/Resolving]
  - Hypermetropia [Unknown]
  - Decreased appetite [Unknown]
  - Malaise [Unknown]
  - Cellulitis [Unknown]
  - Blood thyroid stimulating hormone abnormal [Recovering/Resolving]
  - Weight decreased [Unknown]
  - Depressed mood [Not Recovered/Not Resolved]

NARRATIVE: CASE EVENT DATE: 20180831
